FAERS Safety Report 4376080-9 (Version None)
Quarter: 2004Q2

REPORT INFORMATION
  Report Type: 
  Country: None (occurrence: None)
  Receive Date: 20040611
  Receipt Date: 20040528
  Transmission Date: 20050107
  Serious: Yes (Disabling)
  Sender: FDA-Public Use
  Company Number: FR-BRISTOL-MYERS SQUIBB COMPANY-12607495

PATIENT
  Age: 17 Year
  Sex: Male
  Weight: 63 kg

DRUGS (6)
  1. ENDOXAN [Suspect]
     Indication: HODGKIN'S DISEASE
     Dosage: THERAPY FROM 28-JUN-2002 TO 13-DEC-2002
     Route: 042
     Dates: start: 20021213, end: 20021213
  2. IMMUNE GLOBULIN INTRAVENOUS (HUMAN) [Suspect]
     Indication: IDIOPATHIC THROMBOCYTOPENIC PURPURA
     Route: 042
     Dates: start: 20021105, end: 20021106
  3. CORTANCYL [Suspect]
     Indication: HODGKIN'S DISEASE
     Dosage: THERAPY FROM 02-APR-02 TO 13-DEC-02
     Route: 048
     Dates: start: 20021213, end: 20021213
  4. ONCOVIN [Suspect]
     Indication: HODGKIN'S DISEASE
     Dosage: 02-APR-2002 TO 13-DEC-2002
     Route: 042
     Dates: start: 20021213, end: 20021213
  5. ADRIAMYCIN PFS [Suspect]
     Indication: HODGKIN'S DISEASE
     Dosage: THERAPY: 02-APR-2002 TO 31-MAY-2002
     Route: 042
     Dates: start: 20020531, end: 20020531
  6. NATULAN [Suspect]
     Indication: HODGKIN'S DISEASE
     Dosage: THERAPY: 02-APR-2002 TO 13-DEC-2002
     Route: 048
     Dates: start: 20021213, end: 20021213

REACTIONS (1)
  - DEAFNESS UNILATERAL [None]
